FAERS Safety Report 12223244 (Version 1)
Quarter: 2016Q1

REPORT INFORMATION
  Report Type: Spontaneous
  Country: FI (occurrence: FI)
  Receive Date: 20160330
  Receipt Date: 20160330
  Transmission Date: 20160526
  Serious: Yes (Disabling, Other)
  Sender: FDA-Public Use
  Company Number: FI-TEVA-645773ISR

PATIENT
  Age: 71 Year
  Sex: Female

DRUGS (9)
  1. ORLOC 5 MG [Concomitant]
     Active Substance: BISOPROLOL FUMARATE
     Dosage: 0,5 TABLETS 1-2 TIMES PER DAY
     Route: 048
  2. IBUSAL 400 MG [Concomitant]
     Indication: PAIN
     Dosage: WHEN NEEDED 0,5-1 TABLETS 4 TIMES PER DAY
     Route: 048
  3. TRIPTYL 25 MG [Concomitant]
     Dosage: 1-2 TABLETS/DAY
     Route: 048
  4. ZOMIG 2,5 MG [Concomitant]
     Dosage: 1-2 TABLETS WHEN NEEDED, NOWDAYS 1-2 TIMES/YEAR
     Route: 048
  5. PULMICORT HFA PARANOVA 200 [Concomitant]
     Dosage: INHALATION 1-2 TIMES/DAY
  6. LERTOZOL RATIOPHARM 2,5 MG [Suspect]
     Active Substance: LETROZOLE
     Route: 048
     Dates: start: 201505, end: 20150814
  7. SEPRAM 40 MG [Concomitant]
     Dosage: 40 MILLIGRAM DAILY;
     Route: 048
  8. THYROXIN 0,1 MG [Concomitant]
     Route: 048
  9. DINIT 1,25 MG/DOSE MOUTHSPRAY [Concomitant]
     Route: 048

REACTIONS (35)
  - Blindness transient [Recovered/Resolved]
  - Micturition urgency [Recovered/Resolved]
  - Palpitations [Recovered/Resolved]
  - Peripheral swelling [Recovered/Resolved]
  - Gastric disorder [Not Recovered/Not Resolved]
  - Paraesthesia [Recovered/Resolved]
  - Breast atrophy [Unknown]
  - Arthralgia [Recovered/Resolved]
  - Breast disorder female [Recovered/Resolved]
  - Feeling cold [Recovered/Resolved]
  - Chills [Recovered/Resolved]
  - Varicose vein [Recovered/Resolved]
  - Depression [Recovered/Resolved]
  - Sleep disorder [Recovered/Resolved]
  - Scar pain [Recovered/Resolved]
  - Gastrointestinal disorder [Not Recovered/Not Resolved]
  - Malaise [Recovered/Resolved]
  - Breast pain [Recovered/Resolved]
  - Feeling hot [Recovered/Resolved]
  - Nausea [Recovered/Resolved]
  - Loss of consciousness [Recovered/Resolved]
  - Headache [Recovered/Resolved]
  - Decreased appetite [Recovered/Resolved]
  - Arthralgia [Not Recovered/Not Resolved]
  - Diarrhoea [Unknown]
  - Fall [Recovered/Resolved]
  - Middle insomnia [Unknown]
  - Depressed mood [Recovered/Resolved]
  - Muscle spasms [Recovered/Resolved]
  - Pain in extremity [Recovered/Resolved]
  - Weight decreased [Not Recovered/Not Resolved]
  - Weight gain poor [Not Recovered/Not Resolved]
  - Gait disturbance [Recovered/Resolved]
  - Musculoskeletal stiffness [Recovered/Resolved]
  - Dysuria [Recovered/Resolved]

NARRATIVE: CASE EVENT DATE: 201506
